FAERS Safety Report 4415543-4 (Version None)
Quarter: 2004Q3

REPORT INFORMATION
  Report Type: 
  Country: None (occurrence: None)
  Receive Date: 20040730
  Receipt Date: 20040719
  Transmission Date: 20050211
  Serious: Yes (Hospitalization)
  Sender: FDA-Public Use
  Company Number: HQWYE280921JUL04

PATIENT
  Age: 6 Year
  Sex: Female

DRUGS (14)
  1. RAPAMUNE [Suspect]
     Indication: RENAL TRANSPLANT
     Dosage: 1 MG 1X PER 1 DAY  , ORAL
     Route: 048
     Dates: start: 20040501
  2. NORVASC [Concomitant]
  3. CLONIDINE HCL [Concomitant]
  4. FUROSEMIDE [Concomitant]
  5. ALDACTONE [Concomitant]
  6. CELLCEPT [Concomitant]
  7. PREDNISONE [Concomitant]
  8. COUMADIN [Concomitant]
  9. FOLIC ACID [Concomitant]
  10. LOSEC (OMEPRAZOLE) [Concomitant]
  11. RESPRIM (SULFAMETHOXAZOLE/TRIMETHOPRIM) [Concomitant]
  12. NIFEDIPINE [Concomitant]
  13. ATENOLOL [Concomitant]
  14. FERROUS SULFATE TAB [Concomitant]

REACTIONS (1)
  - NEPHROTIC SYNDROME [None]
